FAERS Safety Report 15774496 (Version 2)
Quarter: 2019Q1

REPORT INFORMATION
  Report Type: Spontaneous
  Country: JP (occurrence: JP)
  Receive Date: 20181229
  Receipt Date: 20190117
  Transmission Date: 20190417
  Serious: Yes (Other)
  Sender: FDA-Public Use
  Company Number: PHHY2018JP197534

PATIENT
  Sex: Female

DRUGS (4)
  1. RIVASTIGMINE. [Suspect]
     Active Substance: RIVASTIGMINE
     Dosage: 9.0 MG, (4.6 MG/24 H) PATCH (5.0 CM2) UNK
     Route: 062
  2. RIVASTIGMINE. [Suspect]
     Active Substance: RIVASTIGMINE
     Indication: DEMENTIA ALZHEIMER^S TYPE
     Dosage: 4.5 MG, PATCH (2.5 CM2) UNK
     Route: 062
  3. RIVASTIGMINE. [Suspect]
     Active Substance: RIVASTIGMINE
     Dosage: 18.0 MG, (9.5 MG/24H), PATCH (10.0 CM2), UNK
     Route: 062
  4. RIVASTIGMINE. [Suspect]
     Active Substance: RIVASTIGMINE
     Dosage: 13.5 MG, PATCH (7.5 CM2), UNK
     Route: 062

REACTIONS (2)
  - Psychotic symptom [Unknown]
  - Hallucination [Unknown]
